FAERS Safety Report 13560947 (Version 2)
Quarter: 2017Q2

REPORT INFORMATION
  Report Type: Spontaneous
  Country: US (occurrence: US)
  Receive Date: 20170518
  Receipt Date: 20170619
  Transmission Date: 20170830
  Serious: No
  Sender: FDA-Public Use
  Company Number: US-PFIZER INC-2017211918

PATIENT
  Age: 7 Year
  Sex: Female
  Weight: 18 kg

DRUGS (6)
  1. HYDROCORTISONE. [Concomitant]
     Active Substance: HYDROCORTISONE
     Dosage: UNK
  2. FLUDROCORTISONE [Concomitant]
     Active Substance: FLUDROCORTISONE
     Dosage: 0.1 MG, 1X/DAY
  3. GENOTROPIN [Suspect]
     Active Substance: SOMATROPIN
     Indication: GROWTH HORMONE DEFICIENCY
     Dosage: UNK
     Dates: start: 2015
  4. GENOTROPIN [Suspect]
     Active Substance: SOMATROPIN
     Indication: SEPTO-OPTIC DYSPLASIA
  5. LEVOTHYROXINE. [Concomitant]
     Active Substance: LEVOTHYROXINE
     Dosage: 25 UG
  6. SOLU-CORTEF [Concomitant]
     Active Substance: HYDROCORTISONE SODIUM SUCCINATE
     Dosage: 50 ML, AS NEEDED

REACTIONS (3)
  - Emotional disorder [Unknown]
  - Mental disorder [Unknown]
  - Adrenal disorder [Unknown]
